FAERS Safety Report 4404190-6 (Version None)
Quarter: 2004Q3

REPORT INFORMATION
  Report Type: 
  Country: None (occurrence: None)
  Receive Date: 20040719
  Receipt Date: 20040713
  Transmission Date: 20050211
  Serious: Yes (Hospitalization)
  Sender: FDA-Public Use
  Company Number: MK200407-0075-1

PATIENT
  Age: 65 Year
  Sex: Male

DRUGS (2)
  1. ANAFRANIL [Suspect]
     Dates: start: 19940715, end: 20040713
  2. FENOFIBRATE [Concomitant]

REACTIONS (2)
  - PANCREATITIS [None]
  - WHITE BLOOD CELL COUNT DECREASED [None]
